FAERS Safety Report 5083317-X (Version None)
Quarter: 2006Q3

REPORT INFORMATION
  Report Type: 
  Country: None (occurrence: None)
  Receive Date: 20060818
  Receipt Date: 20060712
  Transmission Date: 20061208
  Serious: Yes (Hospitalization)
  Sender: FDA-Public Use
  Company Number: US-AMGEN-US186224

PATIENT
  Sex: Male

DRUGS (5)
  1. ENBREL [Suspect]
     Indication: RHEUMATOID ARTHRITIS
     Route: 058
     Dates: start: 20060415
  2. ENBREL [Suspect]
     Route: 058
     Dates: start: 20060427
  3. PREDNISONE [Suspect]
  4. VICODIN [Suspect]
  5. METHOTREXATE [Concomitant]
     Route: 048
     Dates: start: 20060427

REACTIONS (4)
  - CONDITION AGGRAVATED [None]
  - LIMB INJURY [None]
  - RHEUMATOID ARTHRITIS [None]
  - THROMBOSIS [None]
